FAERS Safety Report 5801851-9 (Version None)
Quarter: 2008Q3

REPORT INFORMATION
  Report Type: 
  Country: None (occurrence: None)
  Receive Date: 20080707
  Receipt Date: 20080625
  Transmission Date: 20090109
  Serious: Yes (Disabling)
  Sender: FDA-Public Use
  Company Number: JP-ASTRAZENECA-2008AP05007

PATIENT
  Age: 12958 Day
  Sex: Male

DRUGS (29)
  1. FOSCAVIR [Suspect]
     Indication: CYTOMEGALOVIRUS CHORIORETINITIS
     Route: 041
     Dates: start: 20071129, end: 20071219
  2. FOSCAVIR [Suspect]
     Route: 041
     Dates: start: 20071220, end: 20080121
  3. FOSCAVIR [Suspect]
     Route: 041
     Dates: start: 20080221, end: 20080325
  4. FOSCAVIR [Suspect]
     Route: 041
     Dates: start: 20080326, end: 20080331
  5. TRUVADA [Concomitant]
     Route: 048
     Dates: start: 20070401, end: 20080331
  6. ZITHROMAX [Concomitant]
     Route: 048
     Dates: start: 20070401, end: 20080331
  7. BAKTAR [Concomitant]
     Indication: PNEUMOCYSTIS JIROVECI PNEUMONIA
     Route: 048
     Dates: start: 20070401, end: 20080331
  8. FUNGUARD [Concomitant]
     Indication: PNEUMONIA FUNGAL
     Route: 041
     Dates: start: 20071023, end: 20080128
  9. FUNGUARD [Concomitant]
     Route: 041
     Dates: start: 20080129, end: 20080331
  10. STOCRIN [Concomitant]
     Dosage: NUMBER OF SEPARATE DOSAGES UNKNOWN
     Route: 048
     Dates: start: 20071102, end: 20080125
  11. MAXIPIME [Concomitant]
     Indication: PYREXIA
     Route: 042
     Dates: start: 20071129, end: 20071205
  12. MAXIPIME [Concomitant]
     Route: 042
     Dates: start: 20071222, end: 20071227
  13. RITUXAN [Concomitant]
     Indication: LYMPHOMA
     Route: 041
     Dates: start: 20071206, end: 20071206
  14. RITUXAN [Concomitant]
     Route: 041
     Dates: start: 20071227, end: 20071227
  15. RITUXAN [Concomitant]
     Route: 041
     Dates: start: 20080123, end: 20080123
  16. ENDOXAN [Concomitant]
     Indication: LYMPHOMA
     Route: 041
     Dates: start: 20071207, end: 20071207
  17. ENDOXAN [Concomitant]
     Route: 041
     Dates: start: 20071228, end: 20071228
  18. ADRIACIN [Concomitant]
     Indication: LYMPHOMA
     Route: 041
     Dates: start: 20071207, end: 20071207
  19. ADRIACIN [Concomitant]
     Route: 041
     Dates: start: 20071228, end: 20071228
  20. ONCOVIN [Concomitant]
     Indication: LYMPHOMA
     Route: 041
     Dates: start: 20071207, end: 20071207
  21. ONCOVIN [Concomitant]
     Route: 041
     Dates: start: 20071228, end: 20071228
  22. PREDONINE [Concomitant]
     Indication: LYMPHOMA
     Route: 048
     Dates: start: 20071207, end: 20071211
  23. PREDONINE [Concomitant]
     Route: 048
     Dates: start: 20071228, end: 20080101
  24. CIPROFLOXACIN HCL [Concomitant]
     Indication: PYREXIA
     Route: 041
     Dates: start: 20071228, end: 20080117
  25. VANCOMYCIN [Concomitant]
     Indication: PYREXIA
     Route: 042
     Dates: start: 20080106, end: 20080113
  26. ZYVOX [Concomitant]
     Indication: PYREXIA
     Route: 048
     Dates: start: 20080114, end: 20080128
  27. PIPERACILLIN AND TAZOBACTAM [Concomitant]
     Indication: PYREXIA
     Route: 042
     Dates: start: 20080118, end: 20080212
  28. VALGANCICLOVIR HCL [Concomitant]
     Indication: CYTOMEGALOVIRUS CHORIORETINITIS
     Route: 048
     Dates: start: 20080122, end: 20080220
  29. INVIRASE [Concomitant]
     Dosage: NUMBER OF SEPARATE DOSAGES UNKNOWN
     Route: 048
     Dates: start: 20080126, end: 20080331

REACTIONS (1)
  - AIDS ENCEPHALOPATHY [None]
